FAERS Safety Report 10992654 (Version 1)
Quarter: 2015Q2

REPORT INFORMATION
  Report Type: Spontaneous
  Country: US (occurrence: US)
  Receive Date: 20150406
  Receipt Date: 20150406
  Transmission Date: 20150821
  Serious: No
  Sender: FDA-Public Use
  Company Number: US-MALLINCKRODT-T201403340

PATIENT
  Age: 63 Year
  Sex: Female

DRUGS (4)
  1. MEDROL [Concomitant]
     Active Substance: METHYLPREDNISOLONE
     Indication: ALLERGY PROPHYLAXIS
     Dosage: 12 HOURS AND TWO HOURS PRIOR TO CT
     Dates: start: 201404, end: 201404
  2. CLARINEX [Concomitant]
     Active Substance: DESLORATADINE
  3. OPTIRAY [Suspect]
     Active Substance: IOVERSOL
     Indication: UROGRAM
     Dosage: 40 ML, SINGLE, 2.0 ML/SECOND
     Route: 065
     Dates: start: 20140430, end: 20140430
  4. ATENOLOL. [Concomitant]
     Active Substance: ATENOLOL

REACTIONS (3)
  - Urticaria [Recovered/Resolved]
  - Throat irritation [Recovered/Resolved]
  - Erythema [Recovered/Resolved]

NARRATIVE: CASE EVENT DATE: 20140430
